FAERS Safety Report 5152074-0 (Version None)
Quarter: 2006Q4

REPORT INFORMATION
  Report Type: 
  Country: None (occurrence: None)
  Receive Date: 20061113
  Receipt Date: 20061113
  Transmission Date: 20070319
  Serious: Yes (Death, Hospitalization)
  Sender: FDA-Public Use
  Company Number: None

PATIENT
  Sex: Male
  Weight: 89.4 kg

DRUGS (6)
  1. CYCLOPHOSPHAMIDE [Suspect]
     Dosage: 2500 MG
     Dates: end: 20050614
  2. CYTARABINE [Suspect]
     Dosage: 1160 MG
     Dates: end: 20050603
  3. DAUNORUBICIN HCL [Suspect]
     Dosage: 460 MG
     Dates: end: 20050510
  4. L-ASPARAGINASE [Suspect]
     Dosage: 130000 UNIT
     Dates: end: 20050523
  5. LEUCOVORIN CALCIUM [Suspect]
     Dosage: 320 MG
     Dates: end: 20050822
  6. MERCAPTOPURINE [Suspect]
     Dosage: 1025 MG
     Dates: end: 20050624

REACTIONS (15)
  - ACUTE PRERENAL FAILURE [None]
  - ACUTE RESPIRATORY DISTRESS SYNDROME [None]
  - BLOOD PRESSURE DECREASED [None]
  - DEHYDRATION [None]
  - GRAFT VERSUS HOST DISEASE [None]
  - HEART RATE INCREASED [None]
  - HYPOTENSION [None]
  - LETHARGY [None]
  - MYELODYSPLASTIC SYNDROME [None]
  - NEUTROPHIL COUNT DECREASED [None]
  - PANCYTOPENIA [None]
  - PLEURAL EFFUSION [None]
  - PNEUMONIA [None]
  - PULMONARY OEDEMA [None]
  - SEPSIS [None]
